FAERS Safety Report 25102751 (Version 1)
Quarter: 2025Q1

REPORT INFORMATION
  Report Type: Spontaneous
  Country: US (occurrence: US)
  Receive Date: 20250321
  Receipt Date: 20250321
  Transmission Date: 20250408
  Serious: No
  Sender: ALEXION PHARMACEUTICALS
  Company Number: US-AstraZeneca-CH-00828975AP

PATIENT

DRUGS (1)
  1. SYMBICORT [Suspect]
     Active Substance: BUDESONIDE\FORMOTEROL FUMARATE DIHYDRATE

REACTIONS (13)
  - Drug ineffective [Unknown]
  - Infection [Unknown]
  - Memory impairment [Unknown]
  - Intentional product misuse [Unknown]
  - Product use issue [Unknown]
  - Device delivery system issue [Unknown]
  - Incorrect dose administered by device [Unknown]
  - Emergency care [Unknown]
  - Cough [Unknown]
  - Personality disorder [Unknown]
  - Illness [Unknown]
  - Fatigue [Unknown]
  - Product dose omission issue [Unknown]
